FAERS Safety Report 9359492 (Version 1)
Quarter: 2013Q2

REPORT INFORMATION
  Report Type: Spontaneous
  Country: US (occurrence: US)
  Receive Date: 20130620
  Receipt Date: 20130620
  Transmission Date: 20140414
  Serious: No
  Sender: FDA-Public Use
  Company Number: US-009507513-1306USA009634

PATIENT
  Age: 19 Year
  Sex: Male

DRUGS (3)
  1. CLARITIN-D-24 [Suspect]
     Indication: SEASONAL ALLERGY
     Dosage: UNK UNK, UNKNOWN
     Route: 048
     Dates: start: 20130614
  2. CLARITIN-D-24 [Suspect]
     Indication: SINUS DISORDER
  3. CLARITIN-D-24 [Suspect]
     Indication: MEDICAL OBSERVATION

REACTIONS (1)
  - Diarrhoea [Unknown]
